FAERS Safety Report 13342367 (Version 2)
Quarter: 2017Q2

REPORT INFORMATION
  Report Type: Spontaneous
  Country: CN (occurrence: CN)
  Receive Date: 20170316
  Receipt Date: 20170410
  Transmission Date: 20170830
  Serious: Yes (Other)
  Sender: FDA-Public Use
  Company Number: CN-VALIDUS PHARMACEUTICALS LLC-CN-2017VAL000330

PATIENT

DRUGS (4)
  1. LOTENSIN [Suspect]
     Active Substance: BENAZEPRIL HYDROCHLORIDE
     Dosage: 10 MG, QD
     Route: 048
     Dates: start: 201612, end: 201702
  2. FUMARIC ACID [Concomitant]
     Active Substance: FUMARIC ACID
     Indication: PRODUCT USED FOR UNKNOWN INDICATION
     Dosage: UNK
  3. ASPIRIN                            /00002701/ [Concomitant]
     Active Substance: ASPIRIN
     Indication: PRODUCT USED FOR UNKNOWN INDICATION
     Dosage: UNK
  4. LOTENSIN [Suspect]
     Active Substance: BENAZEPRIL HYDROCHLORIDE
     Indication: HYPERTENSIVE HEART DISEASE
     Dosage: 10 MG, QD
     Route: 065
     Dates: start: 201610

REACTIONS (5)
  - Cardiomegaly [Unknown]
  - Cardiac failure [Unknown]
  - Concomitant disease aggravated [Unknown]
  - Hypertensive cardiomegaly [Unknown]
  - Disease progression [Unknown]

NARRATIVE: CASE EVENT DATE: 201702
